FAERS Safety Report 13376772 (Version 3)
Quarter: 2018Q3

REPORT INFORMATION
  Report Type: Spontaneous
  Country: GB (occurrence: GB)
  Receive Date: 20170328
  Receipt Date: 20180713
  Transmission Date: 20181010
  Serious: Yes (Other)
  Sender: FDA-Public Use
  Company Number: GB-AUROBINDO-AUR-APL-2017-31501

PATIENT
  Age: 59 Year
  Sex: Female

DRUGS (1)
  1. LEVETIRACETAM. [Suspect]
     Active Substance: LEVETIRACETAM
     Indication: MENINGIOMA
     Dosage: UNK
     Route: 065

REACTIONS (3)
  - Oxygen saturation abnormal [Recovered/Resolved]
  - Organ failure [Recovered/Resolved]
  - Eosinophilic pneumonia [Recovered/Resolved]
